FAERS Safety Report 14473174 (Version 1)
Quarter: 2018Q1

REPORT INFORMATION
  Report Type: Spontaneous
  Country: US (occurrence: US)
  Receive Date: 20180201
  Receipt Date: 20180201
  Transmission Date: 20180509
  Serious: No
  Sender: FDA-Public Use
  Company Number: US-AUROBINDO-AUR-APL-2017-30360

PATIENT
  Age: 5 Year
  Sex: Male
  Weight: 20.41 kg

DRUGS (2)
  1. CEFDINIR FOR ORAL SUSPENSION 250 MG/5 ML [Suspect]
     Active Substance: CEFDINIR
     Indication: EAR INFECTION
     Dosage: 6 ML, ONCE A DAY
     Route: 048
     Dates: start: 20170213
  2. TYLENOL [Concomitant]
     Active Substance: ACETAMINOPHEN
     Indication: PRODUCT USED FOR UNKNOWN INDICATION
     Dosage: UNK
     Route: 065
     Dates: start: 20170213

REACTIONS (2)
  - Diarrhoea [Recovered/Resolved]
  - Product storage error [Recovered/Resolved]

NARRATIVE: CASE EVENT DATE: 20170217
